FAERS Safety Report 10381244 (Version 2)
Quarter: 2014Q4

REPORT INFORMATION
  Report Type: Other
  Country: DK (occurrence: US)
  Receive Date: 20140813
  Receipt Date: 20141113
  Transmission Date: 20150528
  Serious: Yes (Life-Threatening)
  Sender: FDA-Public Use
  Company Number: US-FRI-1000069717

PATIENT
  Age: 52 Year
  Sex: Female

DRUGS (2)
  1. METAXALONE. [Suspect]
     Active Substance: METAXALONE
     Route: 048
  2. CITALOPRAM [Suspect]
     Active Substance: CITALOPRAM HYDROBROMIDE

REACTIONS (2)
  - Serotonin syndrome [Recovered/Resolved]
  - Drug interaction [Recovered/Resolved]
